FAERS Safety Report 7961281-0 (Version None)
Quarter: 2011Q4

REPORT INFORMATION
  Report Type: 
  Country: None (occurrence: None)
  Receive Date: 20111201
  Receipt Date: 20111201
  Transmission Date: 20120403
  Serious: Yes (Other)
  Sender: FDA-Public Use
  Company Number: None

PATIENT
  Sex: Female
  Weight: 57.7 kg

DRUGS (19)
  1. WINE [Concomitant]
  2. CERTOLIZUMAB [Suspect]
     Indication: CROHN'S DISEASE
     Dosage: 400 MG 2 MONTHS   400 MG 1 MONTH
     Dates: start: 20081101, end: 20090318
  3. CERTOLIZUMAB [Suspect]
     Indication: CROHN'S DISEASE
     Dosage: 400 MG 2 MONTHS   400 MG 1 MONTH
     Dates: start: 20081015, end: 20081030
  4. CIMZIA [Concomitant]
  5. CALCIUM CARBONATE [Concomitant]
  6. TYLENOL W/ CODEINE [Concomitant]
  7. BENADRYL [Concomitant]
  8. ACETAMINOPHEN [Concomitant]
  9. ALBUTEROL [Concomitant]
  10. ADVAIR DISKUS 100/50 [Concomitant]
  11. ZANTAC [Concomitant]
  12. PSEUDOEPHEDRINE HCL [Concomitant]
  13. ENTOCORT EC [Concomitant]
  14. KEFLEX [Concomitant]
  15. PRENATAL VITAMIN NOS [Concomitant]
  16. CAFFEINE CITRATE [Concomitant]
  17. HUMIRA [Concomitant]
  18. AMOXICILLIN [Concomitant]
  19. OMEGA-3 FATTY ACIDS-NOS [Concomitant]

REACTIONS (1)
  - MATERNAL EXPOSURE DURING PREGNANCY [None]
